FAERS Safety Report 7978816-4 (Version None)
Quarter: 2011Q4

REPORT INFORMATION
  Report Type: 
  Country: None (occurrence: None)
  Receive Date: 20111214
  Receipt Date: 20111206
  Transmission Date: 20120403
  Serious: Yes (Other)
  Sender: FDA-Public Use
  Company Number: MX-BRISTOL-MYERS SQUIBB COMPANY-16279606

PATIENT
  Age: 64 Year
  Sex: Male
  Weight: 84 kg

DRUGS (2)
  1. IRBESARTAN [Suspect]
     Indication: HYPERTENSION
     Dosage: ON 4AUG11 DOSE INCREASED TO 300MG -ONGOING
     Route: 048
     Dates: start: 20090101
  2. ACETAMINOPHEN W/ CODEINE [Concomitant]
     Indication: MIGRAINE
     Dosage: TABS
     Route: 048

REACTIONS (4)
  - HEADACHE [None]
  - HYPERTENSION [None]
  - TACHYCARDIA [None]
  - PROSTATE CANCER [None]
